FAERS Safety Report 6762857-9 (Version None)
Quarter: 2010Q2

REPORT INFORMATION
  Report Type: 
  Country: None (occurrence: None)
  Receive Date: 20100609
  Receipt Date: 20100527
  Transmission Date: 20101027
  Serious: Yes (Other)
  Sender: FDA-Public Use
  Company Number: SK-PFIZER INC-2009310884

PATIENT
  Age: 39 Year
  Sex: Male
  Weight: 80 kg

DRUGS (3)
  1. PREGABALIN [Suspect]
     Indication: EPILEPSY
     Dosage: 75 MG, UNK
     Dates: start: 20091109, end: 20091111
  2. TIMONIL [Concomitant]
     Dosage: 150 MG, 2X/DAY
     Dates: start: 19981020
  3. CARBAMAZEPINE EXTENDED-RELEASE [Concomitant]
     Dosage: 300 MG, 2X/DAY
     Dates: start: 19981020

REACTIONS (1)
  - DERMATITIS ALLERGIC [None]
